FAERS Safety Report 21129601 (Version 1)
Quarter: 2022Q3

REPORT INFORMATION
  Report Type: Report from Study
  Country: MX (occurrence: MX)
  Receive Date: 20220726
  Receipt Date: 20220726
  Transmission Date: 20221027
  Serious: Yes (Hospitalization, Other)
  Sender: FDA-Public Use
  Company Number: MX-ABBOTT-2022A-1351216

PATIENT
  Age: 14 Year
  Sex: Male
  Weight: 32 kg

DRUGS (1)
  1. EPIVAL [Suspect]
     Active Substance: DIVALPROEX SODIUM
     Indication: Seizure
     Dosage: DAILY  DOSE 625 MILLIGRAM, TWO CAPSULES IN THE MORNING, ONE AT LUNCH AND TWO AT NIGHT.
     Route: 048
     Dates: start: 201009

REACTIONS (6)
  - Intentional dose omission [Unknown]
  - Seizure [Recovered/Resolved]
  - Seizure [Recovered/Resolved]
  - Seizure [Recovered/Resolved]
  - Seizure [Recovered/Resolved]
  - Drug ineffective [Unknown]

NARRATIVE: CASE EVENT DATE: 20160101
